FAERS Safety Report 7875076-X (Version None)
Quarter: 2011Q4

REPORT INFORMATION
  Report Type: 
  Country: None (occurrence: None)
  Receive Date: 20111031
  Receipt Date: 20111025
  Transmission Date: 20120403
  Serious: Yes (Hospitalization, Other)
  Sender: FDA-Public Use
  Company Number: DE-BIOGENIDEC-2011BI031518

PATIENT
  Age: 53 Year
  Sex: Female
  Weight: 54 kg

DRUGS (6)
  1. ACTONEL [Concomitant]
  2. TYSABRI [Suspect]
     Indication: MULTIPLE SCLEROSIS
     Route: 042
     Dates: start: 20080801, end: 20110526
  3. MAGNESIUM [Concomitant]
  4. CALCIUM CARBONATE [Concomitant]
  5. TYSABRI [Suspect]
     Route: 042
     Dates: start: 20110819
  6. TOLTERODINE TARTRATE [Concomitant]

REACTIONS (3)
  - CYSTITIS [None]
  - PYELONEPHRITIS [None]
  - PROCEDURAL COMPLICATION [None]
